FAERS Safety Report 5549287-2 (Version None)
Quarter: 2007Q4

REPORT INFORMATION
  Report Type: 
  Country: None (occurrence: None)
  Receive Date: 20071211
  Receipt Date: 20071129
  Transmission Date: 20080405
  Serious: Yes (Hospitalization, Other)
  Sender: FDA-Public Use
  Company Number: US-ELI_LILLY_AND_COMPANY-US200712000587

PATIENT
  Age: 71 Year
  Sex: Male

DRUGS (3)
  1. BYETTA [Suspect]
     Dosage: 10 UG, 2/D
     Route: 058
     Dates: start: 20060502, end: 20070915
  2. HUMULIN N [Concomitant]
     Indication: DIABETES MELLITUS
     Dosage: 30 U, EACH MORNING
  3. HUMULIN N [Concomitant]
     Dosage: 10 U, EACH EVENING
     Dates: start: 20050101

REACTIONS (1)
  - PANCREATITIS [None]
